FAERS Safety Report 24009154 (Version 1)
Quarter: 2024Q2

REPORT INFORMATION
  Report Type: Spontaneous
  Country: US (occurrence: US)
  Receive Date: 20240625
  Receipt Date: 20240625
  Transmission Date: 20240716
  Serious: No
  Sender: FDA-Public Use
  Company Number: US-SAGE-2024SAGE000072

PATIENT
  Age: 30 Year
  Sex: Male

DRUGS (1)
  1. ZULRESSO [Suspect]
     Active Substance: BREXANOLONE
     Indication: Product used for unknown indication
     Dosage: UNK
     Route: 042
     Dates: start: 20240605, end: 20240610

REACTIONS (2)
  - Off label use [Unknown]
  - Incorrect product administration duration [Unknown]

NARRATIVE: CASE EVENT DATE: 20240605
